FAERS Safety Report 7771018-6 (Version None)
Quarter: 2011Q3

REPORT INFORMATION
  Report Type: 
  Country: None (occurrence: None)
  Receive Date: 20110922
  Receipt Date: 20110127
  Transmission Date: 20111222
  Serious: No
  Sender: FDA-Public Use
  Company Number: US-ASTRAZENECA-2010SE60939

PATIENT
  Age: 49 Year
  Sex: Female
  Weight: 45.4 kg

DRUGS (6)
  1. SEROQUEL [Suspect]
     Indication: BIPOLAR DISORDER
     Route: 048
  2. SEROQUEL [Suspect]
     Route: 048
  3. SEROQUEL [Suspect]
     Route: 048
  4. KLONOPIN [Concomitant]
     Route: 048
  5. SEROQUEL [Suspect]
     Indication: DEPRESSION
     Route: 048
  6. WELLBUTRIN [Concomitant]
     Route: 048

REACTIONS (16)
  - BRONCHITIS [None]
  - WRONG DRUG ADMINISTERED [None]
  - HEADACHE [None]
  - DIZZINESS [None]
  - INSOMNIA [None]
  - DRUG DOSE OMISSION [None]
  - MALAISE [None]
  - EAR INFECTION [None]
  - DYSPHAGIA [None]
  - NAUSEA [None]
  - MUSCLE RIGIDITY [None]
  - FATIGUE [None]
  - TREMOR [None]
  - DYSKINESIA [None]
  - VOMITING [None]
  - HEAD BANGING [None]
